FAERS Safety Report 15274747 (Version 1)
Quarter: 2018Q3

REPORT INFORMATION
  Report Type: Spontaneous
  Country: DE (occurrence: DE)
  Receive Date: 20180814
  Receipt Date: 20180814
  Transmission Date: 20181010
  Serious: Yes (Other)
  Sender: FDA-Public Use
  Company Number: DE-TEVA-2018-DE-939714

PATIENT
  Age: 80 Year
  Sex: Female

DRUGS (6)
  1. MAGNESIUM CARBONATE [Concomitant]
     Active Substance: MAGNESIUM CARBONATE
     Indication: PRODUCT USED FOR UNKNOWN INDICATION
     Dosage: UNK
     Route: 065
  2. VALDOXAN [Suspect]
     Active Substance: AGOMELATINE
     Indication: DEPRESSION
     Dosage: 50 MILLIGRAM DAILY; 25 MG
     Route: 048
     Dates: start: 2016, end: 2016
  3. MADOPAR LT [Concomitant]
     Active Substance: BENSERAZIDE HYDROCHLORIDE\LEVODOPA
     Indication: PARKINSON^S DISEASE
     Dosage: UNK
     Route: 065
  4. INSULIN HUMAN [Concomitant]
     Active Substance: INSULIN HUMAN
     Indication: DIABETES MELLITUS
     Dosage: UNK
     Route: 058
  5. VALDOXAN [Suspect]
     Active Substance: AGOMELATINE
     Dosage: 50 MG, DAILY
     Dates: start: 2016
  6. MORPHINE HYDROCHLORIDE [Suspect]
     Active Substance: MORPHINE HYDROCHLORIDE
     Indication: SPINAL FRACTURE
     Dosage: UNK
     Route: 062
     Dates: start: 2016

REACTIONS (5)
  - Drug administered to patient of inappropriate age [Recovered/Resolved]
  - Intentional product misuse [Recovered/Resolved]
  - Loss of personal independence in daily activities [Not Recovered/Not Resolved]
  - Hyperhidrosis [Not Recovered/Not Resolved]
  - Malaise [Not Recovered/Not Resolved]

NARRATIVE: CASE EVENT DATE: 2016
